FAERS Safety Report 10248995 (Version 2)
Quarter: 2014Q3

REPORT INFORMATION
  Report Type: Spontaneous
  Country: GB (occurrence: None)
  Receive Date: 20140618
  Receipt Date: 20140707
  Transmission Date: 20150326
  Serious: Yes (Life-Threatening, Hospitalization)
  Sender: FDA-Public Use
  Company Number: AUR-APL-2014-06375

PATIENT
  Age: 36 Year
  Sex: Male
  Weight: 75 kg

DRUGS (5)
  1. MIRTAZAPINE. [Suspect]
     Active Substance: MIRTAZAPINE
     Indication: SCHIZOPHRENIA
     Route: 048
     Dates: start: 2000, end: 20140523
  2. PANTOPRAZOLE (PANTOPRAZOLE) [Concomitant]
     Active Substance: PANTOPRAZOLE SODIUM
  3. MEBEVERINE (MEBEVERINE) [Concomitant]
     Active Substance: MEBEVERINE
  4. ARIPIPRAZOLE [Suspect]
     Active Substance: ARIPIPRAZOLE
     Indication: SCHIZOPHRENIA
     Route: 048
     Dates: start: 2000, end: 20140523
  5. CLOZAPINE. [Suspect]
     Active Substance: CLOZAPINE
     Indication: SCHIZOPHRENIA
     Route: 048
     Dates: start: 2000, end: 20140523

REACTIONS (2)
  - Acute hepatic failure [None]
  - Abdominal pain [None]

NARRATIVE: CASE EVENT DATE: 2000
